FAERS Safety Report 17172743 (Version 1)
Quarter: 2019Q4

REPORT INFORMATION
  Report Type: Spontaneous
  Country: NL (occurrence: SE)
  Receive Date: 20191218
  Receipt Date: 20191218
  Transmission Date: 20200122
  Serious: Yes (Hospitalization)
  Sender: FDA-Public Use
  Company Number: SE-BAYER-2019-226450

PATIENT
  Age: 30 Year
  Sex: Male

DRUGS (8)
  1. DIVISUN [Suspect]
     Active Substance: CHOLECALCIFEROL
     Dosage: 2400 IU
     Route: 048
     Dates: start: 20190318, end: 20190318
  2. OLANZAPINE. [Suspect]
     Active Substance: OLANZAPINE
     Dosage: 3X7,5 MG SAMT 3X5 MG
     Route: 048
     Dates: start: 20190318, end: 20190318
  3. FOLACIN [FOLIC ACID] [Suspect]
     Active Substance: FOLIC ACID
     Dosage: 3 MG
     Route: 048
     Dates: start: 20190318, end: 20190318
  4. OMEPRAZOLE. [Suspect]
     Active Substance: OMEPRAZOLE
     Dosage: 120 MG, UNK
     Route: 048
     Dates: start: 20190318, end: 20190318
  5. CITALOPRAM [Suspect]
     Active Substance: CITALOPRAM HYDROBROMIDE
     Dosage: 60 MG
     Route: 048
     Dates: start: 20190318, end: 20190318
  6. CLARITINE 10 MG [Suspect]
     Active Substance: LORATADINE
     Dosage: 30 MG
     Route: 048
     Dates: start: 20190318, end: 20190318
  7. POSTAFENE [MECLOZINE] [Suspect]
     Active Substance: MECLIZINE HYDROCHLORIDE
     Dosage: 250 MG, UNK
     Route: 048
     Dates: start: 20190318, end: 20190318
  8. PROPAVAN [Suspect]
     Active Substance: PROPIOMAZINE
     Dosage: 150 MG, UNK
     Route: 048
     Dates: start: 20190318, end: 20190318

REACTIONS (2)
  - Intentional overdose [Unknown]
  - Intentional self-injury [Unknown]

NARRATIVE: CASE EVENT DATE: 20190318
